FAERS Safety Report 9790350 (Version 1)
Quarter: 2013Q4

REPORT INFORMATION
  Report Type: Spontaneous
  Country: US (occurrence: US)
  Receive Date: 20131231
  Receipt Date: 20131231
  Transmission Date: 20140711
  Serious: No
  Sender: FDA-Public Use
  Company Number: US-BAYER-2013-159108

PATIENT
  Age: 21 Year
  Sex: Female
  Weight: 58.96 kg

DRUGS (1)
  1. ALEVE CAPLET [Suspect]
     Indication: DYSMENORRHOEA
     Dosage: UNK UNK, PRN
     Route: 048

REACTIONS (1)
  - Drug ineffective [None]
